FAERS Safety Report 11521774 (Version 1)
Quarter: 2015Q3

REPORT INFORMATION
  Report Type: Spontaneous
  Country: US (occurrence: US)
  Receive Date: 20150918
  Receipt Date: 20150918
  Transmission Date: 20151125
  Serious: No
  Sender: FDA-Public Use
  Company Number: US-ROCHE-722848

PATIENT
  Sex: Female

DRUGS (2)
  1. RIBAVIRIN. [Suspect]
     Active Substance: RIBAVIRIN
     Indication: HEPATITIS C
     Dosage: FORM: PILL
     Route: 065
  2. PEGASYS [Suspect]
     Active Substance: PEGINTERFERON ALFA-2A
     Indication: HEPATITIS C
     Dosage: FORM: PRE-FILLED SYRINGE
     Route: 065

REACTIONS (8)
  - Dry mouth [Unknown]
  - Oral mucosal blistering [Unknown]
  - Psychomotor hyperactivity [Unknown]
  - Swollen tongue [Unknown]
  - Disturbance in attention [Unknown]
  - Emotional distress [Unknown]
  - Dyspnoea [Unknown]
  - Ill-defined disorder [Unknown]
